FAERS Safety Report 6903399-7 (Version None)
Quarter: 2010Q3

REPORT INFORMATION
  Report Type: 
  Country: None (occurrence: None)
  Receive Date: 20100803
  Receipt Date: 20080926
  Transmission Date: 20110219
  Serious: No
  Sender: FDA-Public Use
  Company Number: US-PFIZER INC-2008062350

PATIENT
  Sex: Female
  Weight: 61.8 kg

DRUGS (8)
  1. LYRICA [Suspect]
     Indication: FIBROMYALGIA
     Route: 048
     Dates: start: 20080101
  2. MELOXICAM [Concomitant]
  3. CYMBALTA [Concomitant]
  4. AMBIEN [Concomitant]
  5. BUSPAR [Concomitant]
  6. XANAX [Concomitant]
  7. ACETYLSALICYLIC ACID SRT [Concomitant]
  8. POTASSIUM [Concomitant]

REACTIONS (2)
  - DRUG INEFFECTIVE [None]
  - WEIGHT INCREASED [None]
